FAERS Safety Report 18334453 (Version 5)
Quarter: 2023Q2

REPORT INFORMATION
  Report Type: Other
  Country: CA (occurrence: None)
  Receive Date: 20201001
  Receipt Date: 20230606
  Transmission Date: 20230721
  Serious: Yes (Other)
  Sender: FDA-Public Use
  Company Number: CA-ROCHE-2685754

PATIENT

DRUGS (3)
  1. BEVACIZUMAB [Suspect]
     Active Substance: BEVACIZUMAB
     Indication: Ovarian cancer
     Route: 042
  2. MIRVETUXIMAB SORAVTANSINE [Suspect]
     Active Substance: MIRVETUXIMAB SORAVTANSINE
     Indication: Ovarian cancer
     Route: 065
  3. CARBOPLATIN [Suspect]
     Active Substance: CARBOPLATIN
     Indication: Ovarian cancer
     Route: 065

REACTIONS (21)
  - Nausea [Unknown]
  - Diarrhoea [Unknown]
  - Vision blurred [Unknown]
  - Fatigue [Unknown]
  - Hypertension [Unknown]
  - Neutropenia [Unknown]
  - Small intestinal obstruction [Unknown]
  - Pneumonitis [Unknown]
  - Thrombocytopenia [Unknown]
  - Dry eye [Unknown]
  - Aspartate aminotransferase increased [Unknown]
  - Alanine aminotransferase increased [Unknown]
  - Epistaxis [Unknown]
  - Vomiting [Unknown]
  - Neuropathy peripheral [Unknown]
  - Gastrointestinal haemorrhage [Unknown]
  - Weight decreased [Unknown]
  - Keratopathy [Unknown]
  - Decreased appetite [Unknown]
  - Headache [Unknown]
  - Abdominal pain [Unknown]
